FAERS Safety Report 9316387 (Version 2)
Quarter: 2013Q2

REPORT INFORMATION
  Report Type: Report from Study
  Country: US (occurrence: US)
  Receive Date: 20130530
  Receipt Date: 20130619
  Transmission Date: 20140414
  Serious: Yes (Hospitalization, Other)
  Sender: FDA-Public Use
  Company Number: US-ABBOTT-13P-163-1094708-00

PATIENT
  Sex: Male

DRUGS (3)
  1. HUMIRA [Suspect]
     Indication: CROHN^S DISEASE
     Dates: start: 201302
  2. ANDROGEL [Suspect]
     Indication: PRODUCT USED FOR UNKNOWN INDICATION
     Dates: end: 201304
  3. LORAZEPAM [Concomitant]
     Indication: PANIC ATTACK
     Route: 048

REACTIONS (3)
  - Colon cancer [Recovering/Resolving]
  - Crohn^s disease [Unknown]
  - Retching [Unknown]
